FAERS Safety Report 8575798-1 (Version None)
Quarter: 2012Q3

REPORT INFORMATION
  Report Type: 
  Country: None (occurrence: None)
  Receive Date: 20120807
  Receipt Date: 20120802
  Transmission Date: 20120928
  Serious: Yes (Death, Other)
  Sender: FDA-Public Use
  Company Number: US-AMGEN-USASP2012048711

PATIENT
  Age: 34 Year
  Sex: Male
  Weight: 122.45 kg

DRUGS (18)
  1. HUMIRA [Concomitant]
     Indication: PSORIASIS
     Dosage: 40 MG, Q2WK
     Dates: start: 20120126, end: 20120507
  2. PALIPERIDONE [Concomitant]
     Dosage: 6 MG, BID
     Route: 048
  3. OMEGA-3-ACID ETHYL ESTERS [Suspect]
     Dosage: UNK UNK, QID
     Route: 048
  4. LACOSAMIDE [Concomitant]
     Dosage: UNK
  5. FINASTERIDE [Concomitant]
     Dosage: UNK
  6. LEVOTHYROXINE SODIUM [Concomitant]
     Dosage: 175 MUG, QD
     Route: 048
  7. FELBAMATE [Concomitant]
     Dosage: UNK
  8. CLONIDINE [Suspect]
     Dosage: UNK UNK, BID
     Route: 048
  9. ATENOLOL [Concomitant]
     Dosage: 25 MG, QD
  10. BUDESONIDE W/FORMOTEROL FUMARATE [Concomitant]
     Dosage: 100/4.5 PUFFS , BID
  11. ATORVASTATIN CALCIUM [Concomitant]
     Dosage: 40 MG, QD
     Route: 048
  12. SERTRALINE HYDROCHLORIDE [Concomitant]
     Dosage: 50 MG, QD
  13. BENZTROPINE MESYLATE [Concomitant]
     Dosage: 0.5 MG, BID
     Route: 048
  14. ETANERCEPT [Suspect]
     Indication: PSORIASIS
     Dosage: UNK
  15. FENOFIBRATE [Concomitant]
     Dosage: 145 MG, QD
     Route: 048
  16. HYDROXYZINE HYDROCHLORIDE [Concomitant]
     Dosage: 50 MG, AT BEDTIME AS NEEDED
  17. AMLODIPINE BESYLATE [Suspect]
     Dosage: 10 MG, QD
  18. LORAZEPAM [Concomitant]
     Dosage: UNK

REACTIONS (2)
  - CONGESTIVE CARDIOMYOPATHY [None]
  - MYOCARDIAL INFARCTION [None]
